FAERS Safety Report 9607293 (Version 1)
Quarter: 2013Q3

REPORT INFORMATION
  Report Type: Spontaneous
  Country: US (occurrence: None)
  Receive Date: 20130927
  Receipt Date: 20130927
  Transmission Date: 20140515
  Serious: Yes (Other)
  Sender: FDA-Public Use
  Company Number: 1621253

PATIENT
  Age: 71 Year
  Sex: Male

DRUGS (3)
  1. VANCOMYCIN HYDROCHLORIDE FOR INJECTION [Suspect]
     Indication: PRODUCT USED FOR UNKNOWN INDICATION
     Dosage: 500 MG (1 HOUR)
     Dates: start: 20121228, end: 20130224
  2. SODIUM CHLORIDE [Concomitant]
  3. DIGOXIN [Concomitant]

REACTIONS (1)
  - Renal failure [None]
